FAERS Safety Report 5377141-8 (Version None)
Quarter: 2007Q3

REPORT INFORMATION
  Report Type: 
  Country: None (occurrence: None)
  Receive Date: 20070703
  Receipt Date: 20070627
  Transmission Date: 20080115
  Serious: Yes (Other)
  Sender: FDA-Public Use
  Company Number: AU-ASTRAZENECA-2007AP01357

PATIENT
  Age: 76 Year
  Sex: Male

DRUGS (6)
  1. COSUDEX [Suspect]
     Indication: PROSTATE CANCER
     Route: 048
     Dates: start: 19980101
  2. ZOLADEX [Suspect]
     Indication: PROSTATE CANCER
     Route: 058
  3. FOSAMAX [Concomitant]
     Indication: OSTEOPOROSIS
     Route: 048
     Dates: start: 20040101
  4. ARISTOCORT [Concomitant]
     Indication: DERMATITIS
     Route: 061
  5. ELOCON [Concomitant]
     Indication: DERMATITIS
     Route: 061
  6. FELDENE [Concomitant]
     Indication: ARTHRITIS
     Route: 048

REACTIONS (4)
  - GINGIVITIS [None]
  - LICHEN PLANUS [None]
  - PEMPHIGOID [None]
  - TONGUE ULCERATION [None]
